FAERS Safety Report 16943079 (Version 2)
Quarter: 2019Q4

REPORT INFORMATION
  Report Type: Spontaneous
  Country: JP (occurrence: JP)
  Receive Date: 20191021
  Receipt Date: 20191111
  Transmission Date: 20200122
  Serious: Yes (Hospitalization, Other)
  Sender: FDA-Public Use
  Company Number: JP-009507513-1910JPN002549J

PATIENT
  Age: 78 Year
  Sex: Male

DRUGS (1)
  1. MENESIT TABLETS - 100 [Suspect]
     Active Substance: CARBIDOPA\LEVODOPA
     Indication: PARKINSON^S DISEASE
     Dosage: UNK
     Route: 048

REACTIONS (3)
  - Lip and/or oral cavity cancer [Unknown]
  - Product prescribing error [Unknown]
  - Wrong technique in product usage process [Unknown]
